FAERS Safety Report 6055469-6 (Version None)
Quarter: 2009Q1

REPORT INFORMATION
  Report Type: 
  Country: None (occurrence: None)
  Receive Date: 20090128
  Receipt Date: 20090121
  Transmission Date: 20090719
  Serious: Yes (Hospitalization, Other)
  Sender: FDA-Public Use
  Company Number: US-AVENTIS-200910586US

PATIENT
  Age: 22 Year
  Sex: Female

DRUGS (3)
  1. LOVENOX [Suspect]
     Route: 051
     Dates: start: 20080701, end: 20090116
  2. COUMADIN [Suspect]
     Route: 048
     Dates: start: 20081215, end: 20090101
  3. COUMADIN [Suspect]
     Route: 048
     Dates: start: 20090101, end: 20090113

REACTIONS (5)
  - ABDOMINAL PAIN [None]
  - COAGULOPATHY [None]
  - DRUG EXPOSURE DURING PREGNANCY [None]
  - PREMATURE BABY [None]
  - VAGINAL HAEMORRHAGE [None]
